FAERS Safety Report 5946604-6 (Version None)
Quarter: 2008Q4

REPORT INFORMATION
  Report Type: 
  Country: None (occurrence: None)
  Receive Date: 20081110
  Receipt Date: 20081030
  Transmission Date: 20090506
  Serious: Yes (Other)
  Sender: FDA-Public Use
  Company Number: JP-ROCHE-595834

PATIENT
  Age: 65 Year
  Sex: Male

DRUGS (3)
  1. FLUMAZENIL [Suspect]
     Route: 042
     Dates: start: 20081017, end: 20081017
  2. MIDAZOLAM HCL [Suspect]
     Indication: SEDATIVE THERAPY
     Route: 050
     Dates: start: 20081017, end: 20081017
  3. XYLOCAINE [Suspect]
     Indication: ANAESTHESIA
     Route: 065

REACTIONS (2)
  - BLOOD PRESSURE DECREASED [None]
  - URTICARIA [None]
